FAERS Safety Report 5124619-8 (Version None)
Quarter: 2006Q4

REPORT INFORMATION
  Report Type: 
  Country: None (occurrence: None)
  Receive Date: 20061011
  Receipt Date: 20061002
  Transmission Date: 20070319
  Serious: Yes (Other)
  Sender: FDA-Public Use
  Company Number: US-JNJFOC-20060805013

PATIENT
  Sex: Male

DRUGS (12)
  1. REMICADE [Suspect]
     Route: 042
  2. REMICADE [Suspect]
     Indication: RHEUMATOID ARTHRITIS
     Route: 042
  3. ALTACE [Concomitant]
  4. LOPRESSOR [Concomitant]
  5. ZETIA [Concomitant]
  6. CALCIUM/MAGNESIUM/ZINC [Concomitant]
     Dosage: DOSE 2 CAPLETS/DAY
  7. OMEGA 3 FATTY ACIDS [Concomitant]
     Dosage: DOSE ONE A DAY
  8. FERROUS SULFATE TAB [Concomitant]
  9. ASPIRIN [Concomitant]
     Dosage: DOSE ONE A DAY
  10. NAPROXEN [Concomitant]
  11. METHOTREXATE [Concomitant]
  12. 21ST CENTURY SENTRY SENIOR DIETARY SUPPLEMENT [Concomitant]
     Dosage: 1 TABLET/DAY

REACTIONS (3)
  - PROSTATIC SPECIFIC ANTIGEN INCREASED [None]
  - PROSTATITIS [None]
  - URINARY TRACT INFECTION [None]
